FAERS Safety Report 11636861 (Version 1)
Quarter: 2015Q4

REPORT INFORMATION
  Report Type: Spontaneous
  Country: GB (occurrence: GB)
  Receive Date: 20151016
  Receipt Date: 20151016
  Transmission Date: 20160304
  Serious: Yes (Other)
  Sender: FDA-Public Use
  Company Number: GB-BAYER-2015-438004

PATIENT
  Age: 22 Year
  Sex: Female
  Weight: 55.7 kg

DRUGS (1)
  1. MIRENA [Suspect]
     Active Substance: LEVONORGESTREL
     Indication: CONTRACEPTION
     Dosage: 20 MCG/24HR, CONT
     Route: 015
     Dates: start: 20150720

REACTIONS (2)
  - Suicidal ideation [Unknown]
  - Premenstrual dysphoric disorder [Unknown]

NARRATIVE: CASE EVENT DATE: 20150820
